FAERS Safety Report 7330078-7 (Version None)
Quarter: 2011Q1

REPORT INFORMATION
  Report Type: 
  Country: None (occurrence: None)
  Receive Date: 20110303
  Receipt Date: 20100817
  Transmission Date: 20110831
  Serious: Yes (Other)
  Sender: FDA-Public Use
  Company Number: US-BAYER-201027967NA

PATIENT
  Sex: Female
  Weight: 61.224 kg

DRUGS (5)
  1. YAZ [Suspect]
     Indication: PREMENSTRUAL SYNDROME
     Dosage: 1 DF, QD
     Route: 048
  2. NASACORT [Concomitant]
  3. SINGULAIR [Concomitant]
     Dosage: 10 MG, QD
     Route: 048
  4. YASMIN [Suspect]
     Indication: PREMENSTRUAL SYNDROME
     Dosage: 1 DF, QD
     Route: 048
  5. NORA-BE [Concomitant]
     Dosage: 0.35 MG, UNK

REACTIONS (6)
  - FATIGUE [None]
  - ABDOMINAL PAIN [None]
  - CHOLECYSTITIS CHRONIC [None]
  - BILIARY DYSKINESIA [None]
  - HEADACHE [None]
  - NAUSEA [None]
